FAERS Safety Report 21259099 (Version 1)
Quarter: 2022Q3

REPORT INFORMATION
  Report Type: Report from Study
  Country: US (occurrence: US)
  Receive Date: 20220826
  Receipt Date: 20220826
  Transmission Date: 20221027
  Serious: Yes (Other)
  Sender: FDA-Public Use
  Company Number: US-Zogenix International Limited, A wholly owned subsidiary of Zogenix, Inc.-2022ZX001065

PATIENT
  Age: 7 Year
  Sex: Male

DRUGS (1)
  1. FINTEPLA [Suspect]
     Active Substance: FENFLURAMINE
     Indication: Product used for unknown indication
     Route: 048
     Dates: start: 20210203

REACTIONS (3)
  - Loss of consciousness [Unknown]
  - Diplopia [Unknown]
  - Fall [Unknown]

NARRATIVE: CASE EVENT DATE: 20220801
